FAERS Safety Report 11910926 (Version 2)
Quarter: 2016Q3

REPORT INFORMATION
  Report Type: Report from Study
  Country: JP (occurrence: JP)
  Receive Date: 20160112
  Receipt Date: 20160809
  Transmission Date: 20161109
  Serious: Yes (Hospitalization)
  Sender: FDA-Public Use
  Company Number: JP-SA-2015SA092558

PATIENT
  Age: 74 Year
  Sex: Female
  Weight: 49 kg

DRUGS (29)
  1. THYMOGLOBULINE [Suspect]
     Active Substance: LAPINE T-LYMPHOCYTE IMMUNE GLOBULIN
     Indication: APLASTIC ANAEMIA
     Dosage: STRENGTH: 25MG
     Route: 042
     Dates: start: 20120521, end: 20120521
  2. MOHRUS [Concomitant]
     Active Substance: KETOPROFEN
     Dosage: STRENGTH: 30MG
  3. HYALEIN [Concomitant]
     Active Substance: HYALURONATE SODIUM
     Route: 047
  4. VESICARE [Concomitant]
     Active Substance: SOLIFENACIN SUCCINATE
     Dosage: 5MG
  5. ROCAIN [Concomitant]
     Dates: start: 20120518, end: 20121018
  6. SENNOSIDE [Concomitant]
     Active Substance: SENNOSIDES
     Dosage: STRENGTH: 12MG
  7. EXJADE [Concomitant]
     Active Substance: DEFERASIROX
  8. MYCOSYST [Concomitant]
     Active Substance: FLUCONAZOLE
     Indication: PROPHYLAXIS
     Route: 048
     Dates: start: 20120521, end: 20120828
  9. NORMAL SALINE [Concomitant]
     Active Substance: SODIUM CHLORIDE
     Dosage: 50 ML
     Dates: start: 20120502, end: 20120831
  10. NORMAL SALINE [Concomitant]
     Active Substance: SODIUM CHLORIDE
     Dosage: 500 ML
     Route: 041
     Dates: start: 20120521, end: 20120522
  11. BIOFERMLN-R [Concomitant]
     Indication: PROPHYLAXIS
  12. PREDNISOLONE. [Concomitant]
     Active Substance: PREDNISOLONE
     Dosage: STRENGTH: 5MG
  13. CARBOHYDRATES NOS/SODIUM LACTATE/SODIUM CHLORIDE/POTASSIUM CHLORIDE [Concomitant]
  14. S. ADCHNON [Concomitant]
     Indication: PROPHYLAXIS
     Dosage: 30
     Route: 048
  15. METHYLPREDNISOLONE SODIUM SUCCINATE. [Concomitant]
     Active Substance: METHYLPREDNISOLONE SODIUM SUCCINATE
     Indication: PROPHYLAXIS
     Dosage: 125 MG
     Dates: start: 20120521, end: 20120522
  16. SOLYUGEN G [Concomitant]
     Dosage: 500ML
  17. BACTRAMIN [Concomitant]
     Active Substance: SULFAMETHOXAZOLE\TRIMETHOPRIM
     Indication: PROPHYLAXIS
     Route: 048
     Dates: start: 20120521, end: 20120828
  18. AMLODIN [Concomitant]
     Active Substance: AMLODIPINE BESYLATE
     Indication: HYPERTENSION
     Route: 048
  19. LOXOPROFEN SODIUM [Concomitant]
     Active Substance: LOXOPROFEN SODIUM
     Dosage: 60 MG
     Route: 048
     Dates: start: 20120521, end: 20120521
  20. HEPARIN SODIUM. [Concomitant]
     Active Substance: HEPARIN SODIUM
     Dosage: 10000 UNITS/10 ML
     Dates: start: 20120518, end: 20121018
  21. FLOMOX [Concomitant]
     Active Substance: CEFCAPENE PIVOXIL HYDROCHLORIDE HYDRATE
     Indication: PROPHYLAXIS
     Dates: start: 20120510
  22. CRAVIT [Concomitant]
     Active Substance: LEVOFLOXACIN
     Indication: PROPHYLAXIS
  23. NISSEKI POLYGLOBIN-N [Concomitant]
     Indication: PROPHYLAXIS
  24. ASTRIC [Concomitant]
     Active Substance: ACYCLOVIR
     Indication: PROPHYLAXIS
     Dosage: DRY SYRUP
     Route: 048
     Dates: start: 20120521, end: 20120828
  25. NEORAL [Concomitant]
     Active Substance: CYCLOSPORINE
     Indication: APLASTIC ANAEMIA
     Route: 048
  26. TRANSAMIN [Concomitant]
     Active Substance: TRANEXAMIC ACID
     Indication: PROPHYLAXIS
     Route: 048
  27. NORMAL SALINE [Concomitant]
     Active Substance: SODIUM CHLORIDE
     Dosage: 100 ML
     Dates: start: 20120521, end: 20121012
  28. LACTATE RINGER SOLUTION/MALTOSE [Concomitant]
     Dosage: 500ML
  29. POTACOL-R [Concomitant]

REACTIONS (2)
  - Liver disorder [Recovered/Resolved]
  - Febrile neutropenia [Unknown]

NARRATIVE: CASE EVENT DATE: 20120522
